FAERS Safety Report 19594142 (Version 1)
Quarter: 2021Q3

REPORT INFORMATION
  Report Type: Spontaneous
  Country: CA (occurrence: CA)
  Receive Date: 20210722
  Receipt Date: 20210722
  Transmission Date: 20211014
  Serious: Yes (Hospitalization, Other)
  Sender: FDA-Public Use
  Company Number: CA-TEVA-2021-CA-1934640

PATIENT
  Age: 74 Year
  Sex: Female

DRUGS (20)
  1. ARAVA [Suspect]
     Active Substance: LEFLUNOMIDE
     Route: 065
  2. PLAQUENIL [Suspect]
     Active Substance: HYDROXYCHLOROQUINE SULFATE
     Route: 065
  3. MAGNESIUM [Concomitant]
     Active Substance: MAGNESIUM
     Dosage: 500 MILLIGRAM DAILY;
     Route: 065
  4. VENTOLINE [SALBUTAMOL] [Concomitant]
     Active Substance: ALBUTEROL SULFATE
     Dosage: 8 DOSAGE FORMS DAILY;
     Route: 065
  5. SULFASALAZINE. [Suspect]
     Active Substance: SULFASALAZINE
     Indication: PRODUCT USED FOR UNKNOWN INDICATION
     Route: 065
  6. APO?ATENIDONE [Concomitant]
     Route: 065
  7. CLARITHROMYCIN. [Suspect]
     Active Substance: CLARITHROMYCIN
     Route: 065
  8. RISPERIDONE. [Concomitant]
     Active Substance: RISPERIDONE
     Dosage: 10 MILLIGRAM DAILY;
     Route: 065
  9. ATORVASTATIN [Concomitant]
     Active Substance: ATORVASTATIN
     Indication: PRODUCT USED FOR UNKNOWN INDICATION
     Dosage: 10 MILLIGRAM DAILY;
     Route: 065
  10. CANNABIS SATIVA [Concomitant]
     Active Substance: CANNABIS SATIVA FLOWERING TOP
     Dosage: .5 MILLIGRAM DAILY;
     Route: 065
  11. ERGOCALCIFEROL. [Concomitant]
     Active Substance: ERGOCALCIFEROL
     Dosage: 1000 IU (INTERNATIONAL UNIT) DAILY;
     Route: 065
  12. LANOLIN/MINERAL OIL/WHITE PETROLATUM [Concomitant]
     Route: 065
  13. PARIET [Concomitant]
     Active Substance: RABEPRAZOLE SODIUM
     Dosage: 20 MILLIGRAM DAILY;
     Route: 065
  14. ENBREL [Suspect]
     Active Substance: ETANERCEPT
     Indication: PRODUCT USED FOR UNKNOWN INDICATION
     Route: 065
  15. HUMIRA [Suspect]
     Active Substance: ADALIMUMAB
     Route: 058
  16. ORENCIA [Suspect]
     Active Substance: ABATACEPT
     Route: 058
  17. ACETAMINOPHEN. [Concomitant]
     Active Substance: ACETAMINOPHEN
     Route: 065
  18. METHOTREXATE. [Suspect]
     Active Substance: METHOTREXATE
     Indication: PRODUCT USED FOR UNKNOWN INDICATION
     Route: 065
  19. AMLODIPINE [Concomitant]
     Active Substance: AMLODIPINE BESYLATE
     Indication: PRODUCT USED FOR UNKNOWN INDICATION
     Dosage: 5 MILLIGRAM DAILY;
     Route: 065
  20. SYNTHROID [Concomitant]
     Active Substance: LEVOTHYROXINE SODIUM
     Dosage: .125 MICROGRAM DAILY;
     Route: 065

REACTIONS (8)
  - Hypersensitivity [Unknown]
  - Rash [Unknown]
  - Abdominal pain [Unknown]
  - Pneumonia [Unknown]
  - Hospitalisation [Unknown]
  - Swelling [Unknown]
  - Illness [Unknown]
  - Drug ineffective [Unknown]
